FAERS Safety Report 16694661 (Version 1)
Quarter: 2019Q3

REPORT INFORMATION
  Report Type: Other
  Country: GB (occurrence: GB)
  Receive Date: 20190812
  Receipt Date: 20190812
  Transmission Date: 20191004
  Serious: Yes (Other)
  Sender: FDA-Public Use
  Company Number: GB-BECTON DICKINSON-2019BDN00292

PATIENT

DRUGS (1)
  1. CHLORAPREP [Suspect]
     Active Substance: CHLORHEXIDINE GLUCONATE\ISOPROPYL ALCOHOL
     Route: 061
     Dates: start: 20190417, end: 20190417

REACTIONS (3)
  - Application site inflammation [Recovering/Resolving]
  - Drug hypersensitivity [Recovering/Resolving]
  - Application site erythema [Recovering/Resolving]

NARRATIVE: CASE EVENT DATE: 20190417
